FAERS Safety Report 5222921-2 (Version None)
Quarter: 2007Q1

REPORT INFORMATION
  Report Type: 
  Country: None (occurrence: None)
  Receive Date: 20070129
  Receipt Date: 20070118
  Transmission Date: 20070707
  Serious: Yes (Other)
  Sender: FDA-Public Use
  Company Number: US-PFIZER INC-2005092776

PATIENT
  Sex: Male
  Weight: 88.5 kg

DRUGS (3)
  1. VIAGRA [Suspect]
     Indication: ERECTILE DYSFUNCTION
  2. ANALGESICS [Suspect]
     Indication: PAIN
  3. ALL OTHER THERAPEUTIC PRODUCTS [Suspect]

REACTIONS (6)
  - CARDIAC DISORDER [None]
  - CHEST PAIN [None]
  - HEART RATE INCREASED [None]
  - LOWER LIMB FRACTURE [None]
  - MUSCLE SPASMS [None]
  - PAIN [None]
